FAERS Safety Report 4342395-3 (Version None)
Quarter: 2004Q2

REPORT INFORMATION
  Report Type: 
  Country: None (occurrence: None)
  Receive Date: 20040420
  Receipt Date: 20040420
  Transmission Date: 20050107
  Serious: Yes (Death)
  Sender: FDA-Public Use
  Company Number: None

PATIENT
  Age: 48 Year
  Sex: Male
  Weight: 84.369 kg

DRUGS (10)
  1. TARCEVA [Suspect]
     Indication: PANCREATIC CARCINOMA METASTATIC
     Dosage: SEE IMAGE
     Route: 048
     Dates: start: 20040122, end: 20040211
  2. TARCEVA [Suspect]
     Indication: PANCREATIC CARCINOMA METASTATIC
     Dosage: SEE IMAGE
     Route: 048
     Dates: start: 20040219, end: 20040310
  3. CAPECITABINE [Suspect]
     Indication: PANCREATIC CARCINOMA METASTATIC
     Dosage: SEE IMAGE
     Route: 048
     Dates: start: 20040122, end: 20040205
  4. CAPECITABINE [Suspect]
     Indication: PANCREATIC CARCINOMA METASTATIC
     Dosage: SEE IMAGE
     Route: 048
     Dates: start: 20040219, end: 20040303
  5. ZOFRAN [Concomitant]
  6. COMPAZINE [Concomitant]
  7. ATENOLOL [Concomitant]
  8. ATIVAN [Concomitant]
  9. OXYCODONE [Concomitant]
  10. OXYCONTIN [Concomitant]

REACTIONS (1)
  - DISEASE PROGRESSION [None]
